FAERS Safety Report 8480668-3 (Version None)
Quarter: 2012Q3

REPORT INFORMATION
  Report Type: 
  Country: None (occurrence: None)
  Receive Date: 20120702
  Receipt Date: 20120629
  Transmission Date: 20120928
  Serious: No
  Sender: FDA-Public Use
  Company Number: US-PFIZER INC-2012157066

PATIENT
  Sex: Female
  Weight: 63.5 kg

DRUGS (3)
  1. LORTAB [Concomitant]
     Indication: FIBROMYALGIA
     Dosage: 5/500, MG, DAILY
  2. PREMARIN [Suspect]
     Indication: HORMONE REPLACEMENT THERAPY
     Dosage: 1.25 MG, DAILY
     Dates: end: 20120601
  3. MOBIC [Concomitant]
     Indication: FIBROMYALGIA
     Dosage: UNK, 2X/DAY

REACTIONS (3)
  - HYPERHIDROSIS [None]
  - MALAISE [None]
  - HEADACHE [None]
